FAERS Safety Report 7815566-9 (Version None)
Quarter: 2011Q4

REPORT INFORMATION
  Report Type: 
  Country: None (occurrence: None)
  Receive Date: 20111014
  Receipt Date: 20111010
  Transmission Date: 20120403
  Serious: Yes (Other)
  Sender: FDA-Public Use
  Company Number: US-ABBOTT-11P-163-0855980-00

PATIENT
  Sex: Female

DRUGS (6)
  1. PREDNISONE [Concomitant]
     Indication: CROHN'S DISEASE
  2. HUMIRA [Suspect]
  3. HUMIRA [Suspect]
     Indication: CROHN'S DISEASE
     Route: 058
     Dates: start: 20030101, end: 20060101
  4. HUMIRA [Suspect]
     Route: 058
     Dates: start: 20110919, end: 20110919
  5. VYVANSE [Concomitant]
     Indication: ATTENTION DEFICIT/HYPERACTIVITY DISORDER
  6. PURINETHOL [Concomitant]
     Indication: CROHN'S DISEASE

REACTIONS (2)
  - COLONIC FISTULA [None]
  - POSTOPERATIVE ABSCESS [None]
